FAERS Safety Report 21644308 (Version 2)
Quarter: 2022Q4

REPORT INFORMATION
  Report Type: Report from Study
  Country: US (occurrence: US)
  Receive Date: 20221125
  Receipt Date: 20221130
  Transmission Date: 20230113
  Serious: Yes (Other)
  Sender: FDA-Public Use
  Company Number: US-BRISTOL-MYERS SQUIBB COMPANY-2022-141470

PATIENT
  Age: 66 Year
  Sex: Female

DRUGS (1)
  1. ABECMA [Suspect]
     Active Substance: IDECABTAGENE VICLEUCEL
     Indication: Plasma cell myeloma
     Dosage: IV INFUSION ONCE
     Route: 042
     Dates: start: 202109

REACTIONS (5)
  - Drug ineffective [Unknown]
  - Plasma cell myeloma recurrent [Unknown]
  - Pyrexia [Unknown]
  - Hepatomegaly [Unknown]
  - Meningioma [Unknown]

NARRATIVE: CASE EVENT DATE: 20210101
